FAERS Safety Report 7808489-2 (Version None)
Quarter: 2011Q4

REPORT INFORMATION
  Report Type: 
  Country: None (occurrence: None)
  Receive Date: 20111011
  Receipt Date: 20111011
  Transmission Date: 20120403
  Serious: Yes (Hospitalization)
  Sender: FDA-Public Use
  Company Number: None

PATIENT
  Sex: Male
  Weight: 87 kg

DRUGS (5)
  1. VINCRISTINE SULFATE [Suspect]
     Dosage: 2 MG
  2. CYCLOPHOSPHAMIDE [Suspect]
     Dosage: 1730 MG
  3. DOXORUBICIN HCL [Suspect]
     Dosage: 102 MG
  4. RITUXIMAB (MOAB C2B8 ANTI CD20, CHIMERIC) [Suspect]
     Dosage: 765 MG
  5. PREDNISONE [Suspect]
     Dosage: 400 MG

REACTIONS (3)
  - FEBRILE NEUTROPENIA [None]
  - CLOSTRIDIUM DIFFICILE COLITIS [None]
  - PANCYTOPENIA [None]
